FAERS Safety Report 5220801-X (Version None)
Quarter: 2007Q1

REPORT INFORMATION
  Report Type: 
  Country: None (occurrence: None)
  Receive Date: 20070126
  Receipt Date: 20070115
  Transmission Date: 20070707
  Serious: Yes (Hospitalization, Disabling, Other)
  Sender: FDA-Public Use
  Company Number: PHNU2006DE00576

PATIENT
  Age: 43 Year
  Sex: Male
  Weight: 82 kg

DRUGS (3)
  1. ACLASTA [Suspect]
     Indication: OSTEITIS DEFORMANS
     Dosage: 5 MG, UNK
     Route: 042
     Dates: start: 20050901, end: 20050901
  2. PANTOZOL [Concomitant]
     Dosage: 20 MG, QD
     Route: 048
  3. DEKRISTOL [Concomitant]
     Dosage: 800 MG, QD
     Route: 048

REACTIONS (24)
  - ARTHRALGIA [None]
  - BIOPSY MUSCLE ABNORMAL [None]
  - C-REACTIVE PROTEIN INCREASED [None]
  - COMPUTERISED TOMOGRAM ABNORMAL [None]
  - EOSINOPHIL COUNT INCREASED [None]
  - EOSINOPHILIC FASCIITIS [None]
  - ERYTHEMA [None]
  - HYPERTHERMIA [None]
  - HYPOAESTHESIA [None]
  - HYPOCALCAEMIA [None]
  - INFLAMMATION [None]
  - INFLUENZA LIKE ILLNESS [None]
  - JOINT STIFFNESS [None]
  - NUCLEAR MAGNETIC RESONANCE IMAGING ABNORMAL [None]
  - OEDEMA [None]
  - OEDEMA PERIPHERAL [None]
  - PAIN IN EXTREMITY [None]
  - PARAESTHESIA [None]
  - PLEURAL EFFUSION [None]
  - PYREXIA [None]
  - SKIN HYPERTROPHY [None]
  - SOFT TISSUE DISORDER [None]
  - THROMBOCYTHAEMIA [None]
  - WHITE BLOOD CELL COUNT INCREASED [None]
